FAERS Safety Report 9406039 (Version 3)
Quarter: 2013Q4

REPORT INFORMATION
  Report Type: Spontaneous
  Country: FR (occurrence: FR)
  Receive Date: 20130717
  Receipt Date: 20131218
  Transmission Date: 20140711
  Serious: Yes (Hospitalization)
  Sender: FDA-Public Use
  Company Number: FR-MERCK-1307FRA002866

PATIENT
  Age: 37 Year
  Sex: Male

DRUGS (19)
  1. VICTRELIS [Suspect]
     Indication: CHRONIC HEPATITIS C
     Dosage: 4 DF, TID
     Route: 048
     Dates: start: 20130424, end: 20130611
  2. ISENTRESS [Suspect]
     Indication: HIV INFECTION
     Dosage: 1 DF, BID
     Route: 048
     Dates: start: 20090624
  3. POLARAMINE [Suspect]
     Indication: PRURITUS
     Dosage: 1 DF, TID
     Route: 048
  4. PEGASYS [Suspect]
     Indication: CHRONIC HEPATITIS C
     Dosage: 180 MG, QW
     Route: 058
     Dates: start: 20130211, end: 20130728
  5. COPEGUS [Suspect]
     Indication: CHRONIC HEPATITIS C
     Dosage: 3 DF, BID
     Route: 048
     Dates: start: 20130206
  6. TRUVADA [Suspect]
     Indication: HIV INFECTION
     Dosage: 1 DF, QD
     Route: 048
     Dates: start: 20061114
  7. ZOLPIDEM TARTRATE [Suspect]
     Indication: INSOMNIA
     Dosage: 10 MG, QD
     Route: 048
  8. DAFALGAN CODEINE [Suspect]
     Indication: PAIN
     Dosage: 2 DF, BID
     Route: 048
  9. SPECIAFOLDINE [Suspect]
     Indication: PRODUCT USED FOR UNKNOWN INDICATION
     Dosage: 1 DF, BID
     Route: 048
     Dates: start: 20130424
  10. CYANOCOBALAMIN [Suspect]
     Indication: PRODUCT USED FOR UNKNOWN INDICATION
     Dosage: 1 DF, BIM
     Route: 048
     Dates: start: 20130424
  11. ALPRAZOLAM [Suspect]
     Indication: NERVOUSNESS
     Dosage: 1 MG, QD
     Route: 048
  12. CORTANCYL [Suspect]
     Indication: PRODUCT USED FOR UNKNOWN INDICATION
     Dosage: 40 MG, QD
     Route: 048
     Dates: start: 20130522
  13. SKENAN [Suspect]
     Indication: PAIN
     Dosage: 1 DF, BID
     Route: 048
  14. SKENAN [Suspect]
     Indication: PAIN
     Dosage: 2 DF, BID
     Route: 048
  15. ACTISKENAN [Suspect]
     Indication: PAIN
     Dosage: 1 DF, BID
     Route: 048
  16. PAROXETINE HYDROCHLORIDE [Suspect]
     Indication: DEPRESSION
     Dosage: 1 DF, QD
     Route: 048
  17. TRIMEBUTINE [Suspect]
     Indication: PRODUCT USED FOR UNKNOWN INDICATION
     Dosage: 200 MG, TID
     Route: 048
  18. UVEDOSE [Suspect]
     Indication: PRODUCT USED FOR UNKNOWN INDICATION
     Dosage: 1 DF, UNK
     Route: 048
  19. ASCORBIC ACID [Suspect]
     Indication: PRODUCT USED FOR UNKNOWN INDICATION
     Dosage: 1 G, QD
     Route: 048

REACTIONS (1)
  - Arthralgia [Not Recovered/Not Resolved]
